FAERS Safety Report 12061432 (Version 1)
Quarter: 2016Q1

REPORT INFORMATION
  Report Type: Spontaneous
  Country: US (occurrence: US)
  Receive Date: 20160210
  Receipt Date: 20160210
  Transmission Date: 20160526
  Serious: No
  Sender: FDA-Public Use
  Company Number: US-ALLERGAN-1503348US

PATIENT
  Age: 30 Year
  Sex: Female

DRUGS (5)
  1. VALIUM [Concomitant]
     Active Substance: DIAZEPAM
     Dosage: 10 MG, UNK
  2. KEFLEX [Concomitant]
     Active Substance: CEPHALEXIN
     Dosage: 500 MG, UNK
  3. NORCO [Concomitant]
     Active Substance: ACETAMINOPHEN\HYDROCODONE BITARTRATE
  4. BOTOX COSMETIC [Suspect]
     Active Substance: ONABOTULINUMTOXINA
     Indication: SKIN WRINKLING
     Dosage: 25 UNITS, SINGLE
     Route: 030
     Dates: start: 20150210, end: 20150210
  5. ZOFRAN [Concomitant]
     Active Substance: ONDANSETRON HYDROCHLORIDE
     Dosage: 4 MG, UNK

REACTIONS (6)
  - Pyrexia [Unknown]
  - Dizziness [Unknown]
  - Pain [Unknown]
  - Off label use [Unknown]
  - Nausea [Unknown]
  - Headache [Unknown]

NARRATIVE: CASE EVENT DATE: 201502
